FAERS Safety Report 6792958-0 (Version None)
Quarter: 2010Q2

REPORT INFORMATION
  Report Type: 
  Country: None (occurrence: None)
  Receive Date: 20100624
  Receipt Date: 20090109
  Transmission Date: 20101027
  Serious: Yes (Other)
  Sender: FDA-Public Use
  Company Number: US-PFIZER INC-2008081795

PATIENT
  Age: 67 Year
  Sex: Male

DRUGS (5)
  1. GEODON [Suspect]
     Indication: DEPRESSION
     Route: 048
     Dates: start: 20080601, end: 20080903
  2. GEODON [Suspect]
     Indication: ANXIETY
  3. PROZAC [Concomitant]
  4. AMBIEN [Concomitant]
  5. SYMBYAX [Concomitant]
     Dates: start: 20050901, end: 20080601

REACTIONS (3)
  - RASH [None]
  - TARDIVE DYSKINESIA [None]
  - TRISMUS [None]
